FAERS Safety Report 19958642 (Version 2)
Quarter: 2021Q4

REPORT INFORMATION
  Report Type: Spontaneous
  Country: US (occurrence: US)
  Receive Date: 20211015
  Receipt Date: 20211121
  Transmission Date: 20220303
  Serious: Yes (Other)
  Sender: FDA-Public Use
  Company Number: US-009507513-2110USA003224

PATIENT
  Age: 69 Year
  Sex: Male

DRUGS (2)
  1. JANUVIA [Interacting]
     Active Substance: SITAGLIPTIN PHOSPHATE
     Dosage: 25 MILLIGRAM, ONCE DAILY (QDAY)
     Route: 048
  2. ATORVASTATIN [Interacting]
     Active Substance: ATORVASTATIN
     Dosage: 80 MILLIGRAM, ONCE DAILY (QDAY)

REACTIONS (4)
  - Immune-mediated myositis [Unknown]
  - Rhabdomyolysis [Unknown]
  - Enzyme inhibition [Unknown]
  - Drug interaction [Unknown]
